FAERS Safety Report 12676054 (Version 2)
Quarter: 2016Q4

REPORT INFORMATION
  Report Type: Spontaneous
  Country: US (occurrence: US)
  Receive Date: 20160823
  Receipt Date: 20161003
  Transmission Date: 20170207
  Serious: Yes (Hospitalization, Other)
  Sender: FDA-Public Use
  Company Number: UG-AUROBINDO-AUR-APL-2016-10598

PATIENT
  Age: 54 Year
  Sex: Male

DRUGS (1)
  1. PIPERACILLIN AND TAZOBACTAM [Suspect]
     Active Substance: PIPERACILLIN SODIUM\TAZOBACTAM SODIUM
     Indication: OSTEOMYELITIS CHRONIC
     Route: 065

REACTIONS (16)
  - Jaundice [Unknown]
  - Nephropathy [Recovered/Resolved]
  - Autoimmune hepatitis [Recovered/Resolved]
  - Cholestasis [Recovered/Resolved]
  - Decreased appetite [Unknown]
  - Ascites [Recovered/Resolved]
  - Hepatic function abnormal [Unknown]
  - Pruritus [Unknown]
  - Hyperbilirubinaemia [Recovered/Resolved]
  - Hepatic failure [Recovered/Resolved]
  - Portal hypertension [Unknown]
  - Abdominal distension [Unknown]
  - Hepatitis viral [Recovered/Resolved]
  - Drug-induced liver injury [Recovered/Resolved]
  - Acute kidney injury [Recovered/Resolved]
  - Hepatomegaly [Recovered/Resolved]
